FAERS Safety Report 15371942 (Version 1)
Quarter: 2018Q3

REPORT INFORMATION
  Report Type: Spontaneous
  Country: US (occurrence: US)
  Receive Date: 20180911
  Receipt Date: 20180911
  Transmission Date: 20181010
  Serious: Yes (Other)
  Sender: FDA-Public Use
  Company Number: US-TEVA-2018-US-952573

PATIENT
  Age: 60 Year
  Sex: Female

DRUGS (7)
  1. COCAINE [Concomitant]
     Active Substance: COCAINE
     Indication: PAIN
     Route: 061
  2. FOSAPREPITANT [Concomitant]
     Active Substance: FOSAPREPITANT
     Indication: PAIN
     Route: 042
  3. OXYCODONE HYDROCHLORIDE. [Suspect]
     Active Substance: OXYCODONE HYDROCHLORIDE
     Indication: PAIN
     Dosage: DOSE: EQUIVALENT TO 300MG/DAY OF ORAL MORPHINE (IMMEDIATE AND EXTENDED RELEASE)
     Route: 048
  4. LIDOCAINE. [Suspect]
     Active Substance: LIDOCAINE
     Indication: ADJUVANT THERAPY
     Dosage: DOSE: 0.5MG/KG/H
     Route: 050
  5. LIDOCAINE. [Suspect]
     Active Substance: LIDOCAINE
     Indication: ADJUVANT THERAPY
     Dosage: DOSE: UP?TITRATED TO 2MG/KG/H
     Route: 050
  6. METHADONE [Concomitant]
     Active Substance: METHADONE HYDROCHLORIDE
     Indication: PAIN
     Route: 065
  7. HYDROMORPHONE [Suspect]
     Active Substance: HYDROMORPHONE
     Indication: PAIN
     Route: 042

REACTIONS (6)
  - Paranoia [Unknown]
  - Confusional state [Unknown]
  - Convulsive threshold lowered [Unknown]
  - Delirium [Recovering/Resolving]
  - Agitation [Unknown]
  - Hallucinations, mixed [Unknown]
